FAERS Safety Report 9879830 (Version 1)
Quarter: 2014Q1

REPORT INFORMATION
  Report Type: Spontaneous
  Country: DE (occurrence: DE)
  Receive Date: 20140206
  Receipt Date: 20140206
  Transmission Date: 20141002
  Serious: Yes (Hospitalization)
  Sender: FDA-Public Use
  Company Number: PHHY2014DE012031

PATIENT
  Age: 46 Year
  Sex: 0

DRUGS (3)
  1. OXALIPLATIN [Suspect]
     Indication: COLON CANCER
  2. FOLINIC ACID [Suspect]
     Indication: COLON CANCER
  3. 5-FLUOROURACIL [Suspect]
     Indication: COLON CANCER

REACTIONS (4)
  - Venoocclusive liver disease [Unknown]
  - Venous injury [Unknown]
  - Nodular regenerative hyperplasia [Unknown]
  - Neovascularisation [Unknown]
